FAERS Safety Report 15009577 (Version 1)
Quarter: 2018Q2

REPORT INFORMATION
  Report Type: Spontaneous
  Country: FR (occurrence: FR)
  Receive Date: 20180614
  Receipt Date: 20180614
  Transmission Date: 20180711
  Serious: Yes (Hospitalization)
  Sender: FDA-Public Use
  Company Number: FR-BIOVITRUM-2018FR0670

PATIENT
  Age: 76 Year
  Sex: Male
  Weight: 78 kg

DRUGS (7)
  1. KARDEGIC [Concomitant]
     Active Substance: ASPIRIN DL-LYSINE
  2. ESIDREX [Concomitant]
     Active Substance: HYDROCHLOROTHIAZIDE
  3. TAHOR [Concomitant]
     Active Substance: ATORVASTATIN CALCIUM
  4. AMIODARONE [Concomitant]
     Active Substance: AMIODARONE
  5. KINERET [Suspect]
     Active Substance: ANAKINRA
     Indication: ERDHEIM-CHESTER DISEASE
     Route: 058
     Dates: start: 2014
  6. ALLOPURINOL. [Concomitant]
     Active Substance: ALLOPURINOL
  7. TAMSULOSINE [Concomitant]
     Active Substance: TAMSULOSIN HYDROCHLORIDE

REACTIONS (3)
  - Anaemia [Not Recovered/Not Resolved]
  - Haematoma [Not Recovered/Not Resolved]
  - Thrombocytopenia [Not Recovered/Not Resolved]

NARRATIVE: CASE EVENT DATE: 201801
